FAERS Safety Report 9447334 (Version 1)
Quarter: 2013Q3

REPORT INFORMATION
  Report Type: Spontaneous
  Country: US (occurrence: US)
  Receive Date: 20130808
  Receipt Date: 20130808
  Transmission Date: 20140515
  Serious: No
  Sender: FDA-Public Use
  Company Number: US-BIOGENIDEC-2013BI072666

PATIENT
  Sex: Male

DRUGS (1)
  1. AVONEX [Suspect]
     Indication: MULTIPLE SCLEROSIS
     Route: 030
     Dates: start: 20030830, end: 20130404

REACTIONS (3)
  - Hemiparesis [Recovered/Resolved]
  - Agitation [Recovered/Resolved]
  - Muscular weakness [Recovered/Resolved]
